FAERS Safety Report 4685932-1 (Version None)
Quarter: 2005Q2

REPORT INFORMATION
  Report Type: 
  Country: None (occurrence: None)
  Receive Date: 20050606
  Receipt Date: 20050606
  Transmission Date: 20051028
  Serious: Yes (Death)
  Sender: FDA-Public Use
  Company Number: None

PATIENT
  Sex: Female
  Weight: 279.4 kg

DRUGS (1)
  1. DOCETAXEL 169.5 MG IV OVER ONE HOUR IN 250 CC NS [Suspect]
     Indication: BREAST CANCER
     Dosage: 169.5 MG IV OVER ONE HOUR IN 250 CC NS
     Route: 042
     Dates: start: 20050224, end: 20050224

REACTIONS (4)
  - AMNESIA [None]
  - DYSPNOEA [None]
  - HYPOXIA [None]
  - PLEURAL EFFUSION [None]
